FAERS Safety Report 11124270 (Version 1)
Quarter: 2015Q2

REPORT INFORMATION
  Report Type: Spontaneous
  Country: US (occurrence: US)
  Receive Date: 20150520
  Receipt Date: 20150520
  Transmission Date: 20150821
  Serious: Yes (Hospitalization)
  Sender: FDA-Public Use
  Company Number: US-DRREDDYS-USA/USA/15/0048079

PATIENT
  Age: 85 Year
  Sex: Male

DRUGS (2)
  1. DONEPEZIL HYDROCHLORIDE TABLETS [Suspect]
     Active Substance: DONEPEZIL HYDROCHLORIDE
     Indication: COGNITIVE DISORDER
     Route: 065
  2. ASPIRIN. [Concomitant]
     Active Substance: ASPIRIN
     Indication: ATRIAL FIBRILLATION
     Route: 065

REACTIONS (3)
  - Gastric ulcer [Recovered/Resolved]
  - Shock haemorrhagic [Recovered/Resolved]
  - Gastrointestinal haemorrhage [Recovered/Resolved]
